FAERS Safety Report 22383365 (Version 1)
Quarter: 2023Q2

REPORT INFORMATION
  Report Type: Spontaneous
  Country: US (occurrence: None)
  Receive Date: 20230526
  Receipt Date: 20230526
  Transmission Date: 20230721
  Serious: No
  Sender: FDA-Public Use
  Company Number: None

PATIENT
  Age: 15 Year
  Sex: Male
  Weight: 72.2 kg

DRUGS (1)
  1. XOLAIR [Suspect]
     Active Substance: OMALIZUMAB
     Indication: Urticaria chronic
     Dosage: 300 MG EVERY 28 DAYS SUBCUTANEOUS?
     Route: 058
     Dates: start: 20220719

REACTIONS (10)
  - Initial insomnia [None]
  - Middle insomnia [None]
  - Hot flush [None]
  - Night sweats [None]
  - Anxiety [None]
  - Paranoia [None]
  - Agitation [None]
  - Aggression [None]
  - Feeling abnormal [None]
  - Loss of personal independence in daily activities [None]

NARRATIVE: CASE EVENT DATE: 20230525
